FAERS Safety Report 9922606 (Version 5)
Quarter: 2014Q4

REPORT INFORMATION
  Report Type: Spontaneous
  Country: JP (occurrence: JP)
  Receive Date: 20140225
  Receipt Date: 20141010
  Transmission Date: 20150529
  Serious: No
  Sender: FDA-Public Use
  Company Number: JP-TAKEDA-2014TJP001353

PATIENT
  Sex: Female

DRUGS (12)
  1. LANSAP [Suspect]
     Active Substance: AMOXICILLIN\CLARITHROMYCIN\LANSOPRAZOLE
     Indication: HELICOBACTER INFECTION
     Dosage: 0.5 DF, QD
     Route: 048
     Dates: start: 20140129, end: 20140129
  2. LANSAP [Suspect]
     Active Substance: AMOXICILLIN\CLARITHROMYCIN\LANSOPRAZOLE
     Dosage: 0.5 DF, QD
     Route: 048
     Dates: start: 20140205, end: 20140205
  3. CONSTAN 0.4MG.TABLETS [Suspect]
     Active Substance: ALPRAZOLAM
     Indication: ANXIETY
     Dosage: UNK
     Route: 048
  4. CONSTAN 0.4MG.TABLETS [Suspect]
     Active Substance: ALPRAZOLAM
     Indication: MALAISE
  5. LANSAP [Suspect]
     Active Substance: AMOXICILLIN\CLARITHROMYCIN\LANSOPRAZOLE
     Dosage: 0.5 DF, BID
     Route: 048
     Dates: start: 20140130, end: 20140204
  6. LAMPION PACK (LANSOPRAZOLE, AMOXICILLIN, METRONIDAZOLE) [Suspect]
     Active Substance: AMOXICILLIN\LANSOPRAZOLE\METRONIDAZOLE
     Indication: HELICOBACTER INFECTION
     Dosage: UNK
     Route: 048
     Dates: start: 201409
  7. DEPAS [Concomitant]
     Active Substance: ETIZOLAM
     Dosage: UNK
     Route: 048
  8. DOGMATYL [Concomitant]
     Active Substance: SULPIRIDE
     Indication: GASTRITIS
     Dosage: UNK
     Route: 048
  9. ALINAMIN F [Concomitant]
     Active Substance: FURSULTIAMINE HYDROCHLORIDE
     Indication: MYALGIA
  10. MEILAX [Concomitant]
     Active Substance: ETHYL LOFLAZEPATE
     Dosage: UNK
     Route: 048
  11. ALINAMIN F [Concomitant]
     Active Substance: FURSULTIAMINE HYDROCHLORIDE
     Indication: NEURALGIA
     Dosage: UNK UNK, PRN
     Route: 048
  12. NO DRUG NAME [Concomitant]
     Dosage: UNK
     Route: 048

REACTIONS (9)
  - Abdominal discomfort [Unknown]
  - Dizziness [Unknown]
  - Malaise [Unknown]
  - Drug ineffective [Unknown]
  - Sleep disorder [None]
  - Abdominal pain upper [Not Recovered/Not Resolved]
  - Eye pain [Unknown]
  - Stomatitis [Unknown]
  - Abnormal sensation in eye [Unknown]

NARRATIVE: CASE EVENT DATE: 20140131
